FAERS Safety Report 9782500 (Version 2)
Quarter: 2014Q1

REPORT INFORMATION
  Report Type: Spontaneous
  Country: RU (occurrence: RU)
  Receive Date: 20131226
  Receipt Date: 20140110
  Transmission Date: 20141002
  Serious: Yes (Death)
  Sender: FDA-Public Use
  Company Number: PHHY2013RU152048

PATIENT
  Age: 65 Year
  Sex: Female

DRUGS (3)
  1. ACLASTA [Suspect]
     Indication: OSTEOPOROSIS
     Dosage: UNK UKN, UNK
     Route: 042
     Dates: start: 201311
  2. METYPRED//METHYLPREDNISOLONE [Concomitant]
     Indication: RHEUMATOID ARTHRITIS
     Dosage: UNK, (LOW DOSE)
  3. CORTEXIN [Concomitant]
     Indication: RHEUMATOID ARTHRITIS
     Dosage: UNK (LOW DOSE)

REACTIONS (2)
  - Cardiac failure acute [Fatal]
  - Pyrexia [Fatal]
